FAERS Safety Report 25660505 (Version 1)
Quarter: 2025Q3

REPORT INFORMATION
  Report Type: Spontaneous
  Country: US (occurrence: None)
  Receive Date: 20250808
  Receipt Date: 20250808
  Transmission Date: 20251021
  Serious: Yes (Other)
  Sender: FDA-CTU
  Company Number: None

PATIENT
  Age: 85 Year
  Sex: Male
  Weight: 84.37 kg

DRUGS (3)
  1. VERSED [Suspect]
     Active Substance: MIDAZOLAM HYDROCHLORIDE
  2. FENTANYL [Suspect]
     Active Substance: FENTANYL
  3. ETOMIDATE [Suspect]
     Active Substance: ETOMIDATE

REACTIONS (5)
  - Air embolism [None]
  - Cerebral artery embolism [None]
  - Post procedural complication [None]
  - Unresponsive to stimuli [None]
  - Cerebrovascular accident [None]

NARRATIVE: CASE EVENT DATE: 20250718
